FAERS Safety Report 10350995 (Version 1)
Quarter: 2014Q3

REPORT INFORMATION
  Report Type: Spontaneous
  Country: US (occurrence: US)
  Receive Date: 20140730
  Receipt Date: 20140730
  Transmission Date: 20150326
  Serious: No
  Sender: FDA-Public Use
  Company Number: US-B.I. PHARMACEUTICALS,INC./RIDGEFIELD-2014-BI-33607BP

PATIENT
  Sex: Female
  Weight: 99 kg

DRUGS (6)
  1. UNKNOWN MEDICATION [Concomitant]
     Active Substance: UNSPECIFIED INGREDIENT
     Indication: DIABETES MELLITUS
     Route: 065
  2. COMBIVENT [Suspect]
     Active Substance: ALBUTEROL SULFATE\IPRATROPIUM BROMIDE
     Indication: CHRONIC OBSTRUCTIVE PULMONARY DISEASE
     Dosage: STRENGTH: 18 MCG / 103 MCG
     Route: 055
     Dates: end: 201404
  3. COMBIVENT [Suspect]
     Active Substance: ALBUTEROL SULFATE\IPRATROPIUM BROMIDE
     Indication: BRONCHOSPASM
  4. BABY BENADRYL [Concomitant]
     Indication: HYPERSENSITIVITY
     Route: 048
  5. PROAIR HFA [Concomitant]
     Active Substance: ALBUTEROL SULFATE
     Indication: ILL-DEFINED DISORDER
     Dosage: FORMULATION: INHALATION SPRAY
     Route: 055
  6. FLECONIDE [Concomitant]
     Indication: HYPERSENSITIVITY
     Dosage: FORMULATION: NASAL SPRAY
     Route: 045

REACTIONS (1)
  - Oxygen saturation decreased [Not Recovered/Not Resolved]
